FAERS Safety Report 5873950-7 (Version None)
Quarter: 2008Q3

REPORT INFORMATION
  Report Type: 
  Country: None (occurrence: None)
  Receive Date: 20080908
  Receipt Date: 20080826
  Transmission Date: 20090109
  Serious: Yes (Death)
  Sender: FDA-Public Use
  Company Number: US-MERCK-0808USA05233

PATIENT
  Age: 22 Year
  Sex: Male

DRUGS (3)
  1. MEFOXIN [Suspect]
     Indication: PROPHYLAXIS
     Route: 065
  2. TIGECYCLINE [Concomitant]
     Indication: ESCHERICHIA INFECTION
     Route: 065
  3. TIGECYCLINE [Concomitant]
     Indication: ACINETOBACTER INFECTION
     Route: 065

REACTIONS (2)
  - LEUKOPENIA [None]
  - SEPSIS [None]
